FAERS Safety Report 7751278-8 (Version None)
Quarter: 2011Q3

REPORT INFORMATION
  Report Type: 
  Country: None (occurrence: None)
  Receive Date: 20110912
  Receipt Date: 20110829
  Transmission Date: 20111222
  Serious: Yes (Hospitalization)
  Sender: FDA-Public Use
  Company Number: AUR-APL-2011-04873

PATIENT
  Age: 88 Year
  Sex: Female

DRUGS (6)
  1. METOPROLOL TARTRATE [Suspect]
     Indication: HYPERTENSION
     Dosage: 100 MG (50 MG, 2 IN 1 D),
  2. DILTIAZEM [Suspect]
     Indication: HYPERTENSION
     Dosage: 180 MG, 1 D,
  3. LISINOPRIL [Suspect]
     Indication: HYPERTENSION
     Dosage: 40 MG,
  4. CLONIDINE [Suspect]
     Indication: HYPERTENSION
     Dosage: 0.3 MG, WK, TRANSDERMAL
     Route: 062
  5. HYDRALAZINE HCL [Concomitant]
  6. CHLORTHALIDONE [Suspect]
     Indication: HYPERTENSION
     Dosage: 25 MG,

REACTIONS (7)
  - NODAL RHYTHM [None]
  - PRESYNCOPE [None]
  - BRADYCARDIA [None]
  - FATIGUE [None]
  - CEREBRAL ATROPHY [None]
  - HAEMOGLOBIN DECREASED [None]
  - BLOOD PRESSURE INCREASED [None]
